FAERS Safety Report 7488348-8 (Version None)
Quarter: 2011Q2

REPORT INFORMATION
  Report Type: 
  Country: None (occurrence: None)
  Receive Date: 20110518
  Receipt Date: 20110511
  Transmission Date: 20111010
  Serious: Yes (Death, Other)
  Sender: FDA-Public Use
  Company Number: JP-ASTRAZENECA-2011SE15854

PATIENT
  Age: 87 Year
  Sex: Male
  Weight: 77 kg

DRUGS (5)
  1. CANDESARTAN CILEXETIL [Suspect]
     Indication: HYPERTENSION
     Route: 048
     Dates: start: 20041111, end: 20041120
  2. PREDNISOLONE [Suspect]
     Indication: HENOCH-SCHONLEIN PURPURA NEPHRITIS
     Route: 048
  3. DIGOXIN [Concomitant]
     Route: 048
     Dates: start: 20041111, end: 20041122
  4. DIART [Concomitant]
     Route: 048
     Dates: start: 20041111, end: 20041120
  5. THEO-DUR [Concomitant]
     Route: 048
     Dates: start: 20041111, end: 20041122

REACTIONS (4)
  - HENOCH-SCHONLEIN PURPURA [None]
  - CYTOMEGALOVIRUS COLITIS [None]
  - CELLULITIS [None]
  - HENOCH-SCHONLEIN PURPURA NEPHRITIS [None]
